FAERS Safety Report 7110167-2 (Version None)
Quarter: 2010Q4

REPORT INFORMATION
  Report Type: 
  Country: None (occurrence: None)
  Receive Date: 20101118
  Receipt Date: 20101104
  Transmission Date: 20110411
  Serious: Yes (Other)
  Sender: FDA-Public Use
  Company Number: PHFR2010GB04637

PATIENT

DRUGS (2)
  1. CLOZARIL [Suspect]
     Indication: SCHIZOPHRENIA
     Dosage: UNK
     Route: 048
     Dates: start: 20100929, end: 20101005
  2. CLOZARIL [Suspect]
     Route: 048
     Dates: start: 20100929, end: 19000101

REACTIONS (2)
  - CARDIAC DISORDER [None]
  - EOSINOPHIL COUNT INCREASED [None]
